FAERS Safety Report 6381611-3 (Version None)
Quarter: 2009Q3

REPORT INFORMATION
  Report Type: 
  Country: None (occurrence: None)
  Receive Date: 20090925
  Receipt Date: 20090916
  Transmission Date: 20100115
  Serious: Yes (Death)
  Sender: FDA-Public Use
  Company Number: CERZ-1000895

PATIENT
  Age: 3 Year
  Weight: 12 kg

DRUGS (1)
  1. CEREZYME [Suspect]
     Indication: GAUCHER'S DISEASE
     Dosage: 70 U/KG, INTRAVENOUS
     Route: 042
     Dates: start: 20050605, end: 20090821

REACTIONS (4)
  - CARDIAC FAILURE [None]
  - HYPONATRAEMIA [None]
  - OXYGEN SATURATION DECREASED [None]
  - PYREXIA [None]
